FAERS Safety Report 11200809 (Version 32)
Quarter: 2020Q2

REPORT INFORMATION
  Report Type: Spontaneous
  Country: US (occurrence: US)
  Receive Date: 20150618
  Receipt Date: 20200521
  Transmission Date: 20200713
  Serious: Yes (Hospitalization, Other)
  Sender: FDA-Public Use
  Company Number: US-ACTELION-A-NJ2015-119450

PATIENT
  Age: 65 Year
  Sex: Female
  Weight: 68.03 kg

DRUGS (7)
  1. VELETRI [Suspect]
     Active Substance: EPOPROSTENOL
     Dosage: 30 NG/KG, PER MIN
     Route: 042
  2. VELETRI [Suspect]
     Active Substance: EPOPROSTENOL
     Dosage: 29 NG/KG, PER MIN
     Route: 042
  3. VELETRI [Suspect]
     Active Substance: EPOPROSTENOL
     Indication: PULMONARY HYPERTENSION
     Dosage: 27.5 NG/KG, PER MIN
     Route: 042
  4. SILDENAFIL CITRATE. [Concomitant]
     Active Substance: SILDENAFIL CITRATE
  5. VELETRI [Suspect]
     Active Substance: EPOPROSTENOL
     Dosage: 10 NG/KG, PER MIN
     Route: 042
     Dates: start: 20150603
  6. VELETRI [Suspect]
     Active Substance: EPOPROSTENOL
     Dosage: 30 NG/KG, PER MIN
     Route: 042
  7. VELETRI [Suspect]
     Active Substance: EPOPROSTENOL
     Dosage: 27 NG/KG, PER MIN
     Route: 042

REACTIONS (29)
  - Fall [Unknown]
  - Catheter site pain [Unknown]
  - Catheter site irritation [Unknown]
  - Complication associated with device [Unknown]
  - Epistaxis [Unknown]
  - Catheter management [Unknown]
  - Diarrhoea [Unknown]
  - Transfusion [Unknown]
  - Dyspnoea [Unknown]
  - Blood count abnormal [Unknown]
  - Catheter site extravasation [Unknown]
  - Anaemia [Unknown]
  - Dyspnoea exertional [Unknown]
  - Catheter site swelling [Unknown]
  - Device dislocation [Unknown]
  - Fluid retention [Unknown]
  - Pain in jaw [Unknown]
  - Oedema [Unknown]
  - Gastrointestinal haemorrhage [Unknown]
  - Haemorrhage [Unknown]
  - Internal haemorrhage [Unknown]
  - Headache [Unknown]
  - Malaise [Unknown]
  - Hip fracture [Unknown]
  - Intestinal haemorrhage [Unknown]
  - Rectal haemorrhage [Unknown]
  - Fracture [Unknown]
  - Catheter site haemorrhage [Unknown]
  - Bronchitis [Unknown]

NARRATIVE: CASE EVENT DATE: 20190808
